FAERS Safety Report 7078219-3 (Version None)
Quarter: 2010Q4

REPORT INFORMATION
  Report Type: 
  Country: None (occurrence: None)
  Receive Date: 20101101
  Receipt Date: 20101101
  Transmission Date: 20110411
  Serious: Yes (Life-Threatening)
  Sender: FDA-Public Use
  Company Number: None

PATIENT
  Sex: Male
  Weight: 98.4306 kg

DRUGS (2)
  1. LEVAQUIN [Suspect]
     Indication: PNEUMONIA
     Dosage: 500 MG DAILY
     Dates: start: 20100711, end: 20100712
  2. LEVAQUIN [Suspect]
     Indication: PNEUMONIA
     Dosage: 500 MG DAILY
     Dates: start: 20100713, end: 20100714

REACTIONS (4)
  - ARTHRALGIA [None]
  - NECROTISING ULCERATIVE GINGIVOSTOMATITIS [None]
  - PAIN [None]
  - SWELLING [None]
